FAERS Safety Report 18997688 (Version 5)
Quarter: 2021Q3

REPORT INFORMATION
  Report Type: Spontaneous
  Country: PL (occurrence: PL)
  Receive Date: 20210311
  Receipt Date: 20210909
  Transmission Date: 20211014
  Serious: Yes (Hospitalization, Other)
  Sender: FDA-Public Use
  Company Number: PL-MYLANLABS-2021M1013327

PATIENT
  Age: 70 Year
  Sex: Male

DRUGS (12)
  1. LACIDIPINE [Suspect]
     Active Substance: LACIDIPINE
     Indication: PRODUCT USED FOR UNKNOWN INDICATION
     Dosage: UNK
  2. CLOPIDOGREL [Suspect]
     Active Substance: CLOPIDOGREL BISULFATE
     Indication: PRODUCT USED FOR UNKNOWN INDICATION
     Dosage: 600 MILLIGRAM
     Route: 065
  3. TICAGRELOR. [Interacting]
     Active Substance: TICAGRELOR
     Dosage: 2 X 90 MILLIGRAM, FOR A MONTH
     Route: 065
  4. ROSUVASTATIN. [Interacting]
     Active Substance: ROSUVASTATIN
     Indication: PRODUCT USED FOR UNKNOWN INDICATION
     Dosage: 40 MILLIGRAM, ONCE A DAY
     Route: 048
  5. CLOPIDOGREL [Suspect]
     Active Substance: CLOPIDOGREL BISULFATE
     Dosage: 75 MILLIGRAM, QD
     Route: 065
  6. TICAGRELOR. [Interacting]
     Active Substance: TICAGRELOR
     Indication: ACUTE MYOCARDIAL INFARCTION
     Dosage: 90 MILLIGRAM, TWO TIMES A DAY
     Route: 048
  7. CEFTAZIDIME. [Concomitant]
     Active Substance: CEFTAZIDIME
     Dosage: UNK
  8. PANTOPRAZOLE [Suspect]
     Active Substance: PANTOPRAZOLE
     Indication: PRODUCT USED FOR UNKNOWN INDICATION
     Dosage: 20 MILLIGRAM, ONCE A DAY
     Route: 065
  9. ASPIRIN                            /00002701/ [Concomitant]
     Active Substance: ASPIRIN
     Indication: PRODUCT USED FOR UNKNOWN INDICATION
     Dosage: 1 X 75 MILLIGRAM, FOR A MONTH
     Route: 065
  10. RAMIPRIL. [Concomitant]
     Active Substance: RAMIPRIL
     Indication: PRODUCT USED FOR UNKNOWN INDICATION
     Dosage: 1 X 2.5 MILLIGRAM, FOR A MONTH
     Route: 065
  11. BISOPROLOL [Suspect]
     Active Substance: BISOPROLOL
     Indication: PRODUCT USED FOR UNKNOWN INDICATION
     Dosage: 1 X 2.5 MILLIGRAM, FOR A MONTH
     Route: 065
  12. ROSUVASTATIN. [Interacting]
     Active Substance: ROSUVASTATIN
     Dosage: 1 X 40 MILLIGRAM, FOR A MONTH
     Route: 065

REACTIONS (9)
  - Gastrointestinal haemorrhage [Unknown]
  - Clostridium difficile infection [Recovered/Resolved]
  - Procalcitonin increased [Unknown]
  - Acute kidney injury [Recovering/Resolving]
  - Blood urea increased [Recovering/Resolving]
  - Anuria [Unknown]
  - Rhabdomyolysis [Recovering/Resolving]
  - Drug interaction [Unknown]
  - Melaena [Unknown]
